FAERS Safety Report 8423969-7 (Version None)
Quarter: 2012Q2

REPORT INFORMATION
  Report Type: 
  Country: None (occurrence: None)
  Receive Date: 20120608
  Receipt Date: 20120604
  Transmission Date: 20120825
  Serious: Yes (Other)
  Sender: FDA-Public Use
  Company Number: VE-ELI_LILLY_AND_COMPANY-VE201206001910

PATIENT
  Age: 47 Year
  Sex: Female

DRUGS (1)
  1. BYETTA [Suspect]
     Dosage: 5 UG, UNK
     Dates: start: 20120420, end: 20120426

REACTIONS (3)
  - CONVULSION [None]
  - INTENTIONAL DRUG MISUSE [None]
  - HYPOGLYCAEMIA [None]
